FAERS Safety Report 5280890-3 (Version None)
Quarter: 2007Q1

REPORT INFORMATION
  Report Type: 
  Country: None (occurrence: None)
  Receive Date: 20070329
  Receipt Date: 20070316
  Transmission Date: 20070707
  Serious: Yes (Other)
  Sender: FDA-Public Use
  Company Number: CH-SHR-CH-2007-010634

PATIENT
  Age: 18 Year
  Sex: Female

DRUGS (1)
  1. MIRANOVA (21) [Suspect]

REACTIONS (1)
  - LIVER DISORDER [None]
